FAERS Safety Report 7104815-0 (Version None)
Quarter: 2010Q4

REPORT INFORMATION
  Report Type: 
  Country: None (occurrence: None)
  Receive Date: 20101116
  Receipt Date: 20101109
  Transmission Date: 20110411
  Serious: Yes (Disabling)
  Sender: FDA-Public Use
  Company Number: AU-B.I. PHARMACEUTICALS,INC./RIDGEFIELD-2009-AU-00589AU

PATIENT
  Sex: Female
  Weight: 48 kg

DRUGS (13)
  1. SPIRIVA [Suspect]
     Indication: CHRONIC OBSTRUCTIVE PULMONARY DISEASE
     Dosage: 18 MCG
     Dates: start: 20071201, end: 20090805
  2. ALVESCO [Concomitant]
     Dosage: 320 MCG
     Route: 055
  3. CARTIA XT [Concomitant]
     Dosage: 100 MG
     Route: 048
  4. CRESTOR [Concomitant]
     Dosage: 10 MG
     Route: 048
  5. PRILOSEC [Concomitant]
     Dosage: 20 MG
     Route: 048
  6. MONOPRIL [Concomitant]
     Dosage: 20 MG
     Route: 048
  7. PANADOL OSTEO [Concomitant]
     Dosage: 2660 MG
     Route: 048
  8. PROTOS [Concomitant]
     Dosage: 2 G
     Route: 048
  9. TEMAZE [Concomitant]
     Dosage: 10 MG
     Route: 048
  10. TRAMADOL HCL [Concomitant]
     Dosage: 300 MG
     Route: 048
  11. VENTOLIN [Concomitant]
     Dosage: 1200 MCG
     Route: 055
  12. VENTOLIN [Concomitant]
     Route: 055
  13. VOLTAREN [Concomitant]
     Dosage: 100 MG
     Route: 048

REACTIONS (1)
  - PHOTOSENSITIVITY REACTION [None]
